FAERS Safety Report 24242263 (Version 1)
Quarter: 2024Q3

REPORT INFORMATION
  Report Type: Spontaneous
  Country: FR (occurrence: FR)
  Receive Date: 20240823
  Receipt Date: 20240823
  Transmission Date: 20241017
  Serious: Yes (Hospitalization)
  Sender: ACCORD
  Company Number: None

PATIENT
  Age: 81 Year
  Sex: Male
  Weight: 58.7 kg

DRUGS (6)
  1. FUROSEMIDE [Suspect]
     Active Substance: FUROSEMIDE
     Indication: Cardiac failure
     Dates: end: 20240229
  2. BISOPROLOL [Suspect]
     Active Substance: BISOPROLOL\BISOPROLOL FUMARATE
     Indication: Ischaemic cardiomyopathy
     Dates: end: 20240229
  3. OXAZEPAM [Suspect]
     Active Substance: OXAZEPAM
     Indication: Dementia Alzheimer^s type
  4. ALFUZOSIN [Suspect]
     Active Substance: ALFUZOSIN
     Indication: Benign prostatic hyperplasia
  5. LOXAPINE [Suspect]
     Active Substance: LOXAPINE
     Indication: Dementia Alzheimer^s type
     Dates: end: 20240229
  6. DAPAGLIFLOZIN [Suspect]
     Active Substance: DAPAGLIFLOZIN
     Indication: Cardiac failure
     Dosage: LONG COURS

REACTIONS (3)
  - Disturbance in attention [Recovering/Resolving]
  - Dehydration [Recovering/Resolving]
  - Bradycardia [Recovering/Resolving]

NARRATIVE: CASE EVENT DATE: 20240229
